FAERS Safety Report 4861269-2 (Version None)
Quarter: 2005Q4

REPORT INFORMATION
  Report Type: 
  Country: None (occurrence: None)
  Receive Date: 20051220
  Receipt Date: 20051005
  Transmission Date: 20060501
  Serious: Yes (Hospitalization, Disabling, Other)
  Sender: FDA-Public Use
  Company Number: US-MERCK-0510USA04456

PATIENT
  Age: 73 Year
  Sex: Female
  Weight: 82 kg

DRUGS (10)
  1. VIOXX [Suspect]
     Indication: ARTHRITIS
     Route: 048
     Dates: start: 20021201, end: 20041201
  2. VIOXX [Suspect]
     Route: 065
     Dates: start: 20020401
  3. PLENDIL [Concomitant]
     Route: 065
  4. ALLOPURINOL [Concomitant]
     Route: 065
  5. PRILOSEC [Concomitant]
     Route: 065
  6. CEPHALEXIN [Concomitant]
     Route: 065
  7. LASIX [Concomitant]
     Route: 065
  8. POTASSIUM (UNSPECIFIED) [Concomitant]
     Route: 065
  9. GLYBURIDE [Concomitant]
     Route: 065
  10. CELEBREX [Concomitant]
     Route: 065

REACTIONS (12)
  - AORTIC VALVE STENOSIS [None]
  - ATRIOVENTRICULAR BLOCK COMPLETE [None]
  - CARDIAC FAILURE [None]
  - CELLULITIS [None]
  - DYSPLASIA [None]
  - GASTRIC DISORDER [None]
  - HYPERKALAEMIA [None]
  - HYPERTENSION [None]
  - LIVER DISORDER [None]
  - PANCYTOPENIA [None]
  - RENAL FAILURE ACUTE [None]
  - VENOUS STASIS [None]
